FAERS Safety Report 6682230-1 (Version None)
Quarter: 2010Q2

REPORT INFORMATION
  Report Type: 
  Country: None (occurrence: None)
  Receive Date: 20100415
  Receipt Date: 20100406
  Transmission Date: 20101027
  Serious: Yes (Hospitalization)
  Sender: FDA-Public Use
  Company Number: US-BIOGENIDEC-2010BI005634

PATIENT
  Age: 59 Year
  Sex: Male
  Weight: 77 kg

DRUGS (3)
  1. AVONEX [Suspect]
     Indication: MULTIPLE SCLEROSIS
     Route: 030
     Dates: start: 20020405, end: 20090101
  2. AVONEX [Suspect]
     Route: 030
     Dates: start: 20090101, end: 20100101
  3. AVONEX [Suspect]
     Route: 030
     Dates: start: 20100101

REACTIONS (1)
  - MULTIPLE SCLEROSIS RELAPSE [None]
